FAERS Safety Report 14860768 (Version 1)
Quarter: 2018Q2

REPORT INFORMATION
  Report Type: Spontaneous
  Country: DK (occurrence: DK)
  Receive Date: 20180508
  Receipt Date: 20180508
  Transmission Date: 20180711
  Serious: Yes (Hospitalization, Other)
  Sender: FDA-Public Use
  Company Number: DK-GLAXOSMITHKLINE-DK2018075988

PATIENT
  Age: 23 Year
  Sex: Female
  Weight: 67 kg

DRUGS (10)
  1. AVAMYS [Suspect]
     Active Substance: FLUTICASONE FUROATE
     Indication: RHINORRHOEA
     Dosage: STRENGTH: 27.5 MICROGRAMS.
     Route: 045
     Dates: start: 20170111
  2. BUFOMIX EASYHALER [Suspect]
     Active Substance: BUDESONIDE\FORMOTEROL FUMARATE
     Indication: ASTHMA
     Dosage: STRENGTH: 9 + 320 MICROGRAMS / DOSE
     Route: 055
     Dates: start: 20161014
  3. GIONA EASYHALER [Suspect]
     Active Substance: BUDESONIDE
     Indication: ASTHMA
     Dosage: STRENGTH: 200 MICROGRAMS / DOSE. DOSAGE: 1 SUCK TOMORROW AND 2 SUCK THE EVENING.
     Route: 055
  4. MICROGYN [Concomitant]
     Active Substance: ETHINYL ESTRADIOL\LEVONORGESTREL
     Indication: CONTRACEPTION
     Dosage: STRENGTH: 0,15 + 0,03 MG.
     Route: 048
     Dates: start: 20170829, end: 201804
  5. FEXOFENADINE [Concomitant]
     Active Substance: FEXOFENADINE\FEXOFENADINE HYDROCHLORIDE
     Indication: SEASONAL ALLERGY
     Dosage: STRENGTH: 120 MG.
     Route: 048
     Dates: start: 20160425
  6. MONTELUKAST [Concomitant]
     Active Substance: MONTELUKAST SODIUM
     Indication: ASTHMA
     Dosage: STRENGTH: 10 MG.
     Route: 048
     Dates: start: 20170111, end: 201711
  7. BUVENTOL EASYHALER [Concomitant]
     Active Substance: ALBUTEROL SULFATE
     Indication: ASTHMA
     Dosage: STYRKE: 200 MIKROGRAM/DOSIS. ; AS NECESSARY
     Route: 055
     Dates: start: 20161014
  8. DESLORATADINE. [Concomitant]
     Active Substance: DESLORATADINE
     Indication: SEASONAL ALLERGY
     Dosage: STRENGTH: 5 MG.
     Route: 048
  9. ELOCON [Suspect]
     Active Substance: MOMETASONE FUROATE
     Indication: ECZEMA
     Dosage: STRENGTH: 0.1 %. ; AS NECESSARY
     Route: 003
     Dates: start: 2013
  10. OPATANOL [Concomitant]
     Active Substance: OLOPATADINE
     Indication: EYE INFECTION
     Dosage: STRENGTH: 1 MG / ML. DOSAGE: IN BOTH EYES.
     Route: 050
     Dates: start: 20170111

REACTIONS (1)
  - Adrenal insufficiency [Recovering/Resolving]

NARRATIVE: CASE EVENT DATE: 2017
